FAERS Safety Report 6948651-4 (Version None)
Quarter: 2010Q3

REPORT INFORMATION
  Report Type: 
  Country: None (occurrence: None)
  Receive Date: 20100828
  Receipt Date: 20091106
  Transmission Date: 20110219
  Serious: No
  Sender: FDA-Public Use
  Company Number: US-ABBOTT-09P-163-0607712-00

PATIENT
  Sex: Male
  Weight: 76.272 kg

DRUGS (18)
  1. NIASPAN [Suspect]
     Indication: BLOOD CHOLESTEROL INCREASED
     Route: 048
     Dates: start: 20091026, end: 20091109
  2. AMLODIPINE [Concomitant]
     Indication: HYPERTENSION
     Route: 048
  3. LISINOPRIL [Concomitant]
     Indication: HYPERTENSION
     Route: 048
  4. METOPROLOL [Concomitant]
     Indication: HYPERTENSION
     Route: 048
  5. METOPROLOL [Concomitant]
     Route: 048
  6. CHOLESTYRAMINE [Concomitant]
     Indication: BLOOD CHOLESTEROL INCREASED
     Route: 048
  7. LIPITOR [Concomitant]
     Indication: BLOOD CHOLESTEROL INCREASED
     Route: 048
  8. FISH OIL [Concomitant]
     Indication: BLOOD CHOLESTEROL INCREASED
     Route: 048
  9. SOMA [Concomitant]
     Indication: BACK PAIN
     Route: 048
  10. ASPIRIN [Concomitant]
     Indication: CARDIOVASCULAR EVENT PROPHYLAXIS
     Route: 048
  11. ASPIRIN [Concomitant]
     Indication: FLUSHING
  12. ASPIRIN [Concomitant]
     Indication: PROPHYLAXIS
  13. COLACE [Concomitant]
     Indication: PRODUCT USED FOR UNKNOWN INDICATION
     Route: 048
  14. PREDNISONE [Concomitant]
     Indication: ARTHRITIS
     Route: 048
  15. METHOTREXATE [Concomitant]
     Indication: ARTHRITIS
     Route: 048
  16. FOLIC ACID [Concomitant]
     Indication: VITAMIN SUPPLEMENTATION
     Route: 048
  17. PROAIR HFA [Concomitant]
     Indication: ASTHMA
     Route: 055
  18. CENTRUM [Concomitant]
     Indication: VITAMIN SUPPLEMENTATION
     Route: 048

REACTIONS (2)
  - PRURITUS [None]
  - RASH [None]
